FAERS Safety Report 6165204-9 (Version None)
Quarter: 2009Q2

REPORT INFORMATION
  Report Type: 
  Country: None (occurrence: None)
  Receive Date: 20090421
  Receipt Date: 20090421
  Transmission Date: 20091009
  Serious: Yes (Other)
  Sender: FDA-Public Use
  Company Number: None

PATIENT
  Age: 80 Year
  Sex: Male
  Weight: 121.1104 kg

DRUGS (4)
  1. BUPROPION HCL [Suspect]
     Indication: ANXIETY
     Dates: start: 20090305, end: 20090420
  2. BUPROPION HCL [Suspect]
     Indication: APATHY
     Dates: start: 20090305, end: 20090420
  3. BUPROPION HCL [Suspect]
     Indication: DEPRESSION
     Dates: start: 20090305, end: 20090420
  4. BUPROPION HCL [Suspect]
     Indication: OBSESSIVE-COMPULSIVE DISORDER
     Dates: start: 20090305, end: 20090420

REACTIONS (7)
  - APATHY [None]
  - FALL [None]
  - HYPERPHAGIA [None]
  - NAUSEA [None]
  - PRODUCT SUBSTITUTION ISSUE [None]
  - THERAPEUTIC RESPONSE UNEXPECTED WITH DRUG SUBSTITUTION [None]
  - VOMITING [None]
